FAERS Safety Report 17420902 (Version 1)
Quarter: 2020Q1

REPORT INFORMATION
  Report Type: Report from Study
  Country: IT (occurrence: IT)
  Receive Date: 20200214
  Receipt Date: 20200214
  Transmission Date: 20200409
  Serious: Yes (Other)
  Sender: FDA-Public Use
  Company Number: IT-MYLANLABS-2020M1015900

PATIENT
  Age: 73 Year
  Sex: Male

DRUGS (1)
  1. ACETYLCYSTEINE. [Suspect]
     Active Substance: ACETYLCYSTEINE
     Indication: BRONCHITIS
     Dosage: 1 DOSAGE FORM, PRN
     Route: 048
     Dates: start: 20191124, end: 20191124

REACTIONS (8)
  - Rash pruritic [Recovering/Resolving]
  - Paraesthesia [Recovering/Resolving]
  - Facial paralysis [Recovering/Resolving]
  - Dysphagia [Recovering/Resolving]
  - Rhinorrhoea [Recovering/Resolving]
  - Rash erythematous [Recovering/Resolving]
  - Dyspnoea [Recovering/Resolving]
  - Tongue oedema [Recovering/Resolving]

NARRATIVE: CASE EVENT DATE: 20191124
